FAERS Safety Report 10459983 (Version 4)
Quarter: 2015Q2

REPORT INFORMATION
  Report Type: Spontaneous
  Country: FR (occurrence: FR)
  Receive Date: 20140917
  Receipt Date: 20150626
  Transmission Date: 20150821
  Serious: Yes (Other)
  Sender: FDA-Public Use
  Company Number: FR-UCBSA-2014009745

PATIENT
  Age: 32 Year
  Sex: Female

DRUGS (3)
  1. CIMZIA [Suspect]
     Active Substance: CERTOLIZUMAB PEGOL
     Indication: CROHN^S DISEASE
     Dosage: 200 MG, EV 2 WEEKS(QOW)
     Route: 058
  2. CIMZIA [Suspect]
     Active Substance: CERTOLIZUMAB PEGOL
     Indication: OFF LABEL USE
  3. METOJECT [Concomitant]
     Active Substance: METHOTREXATE SODIUM
     Indication: CROHN^S DISEASE
     Dosage: 15 MG, WEEKLY (QW)
     Dates: end: 20140812

REACTIONS (4)
  - Pregnancy on contraceptive [Recovered/Resolved]
  - Off label use [Unknown]
  - Abortion spontaneous [Unknown]
  - Pregnancy [Unknown]

NARRATIVE: CASE EVENT DATE: 20140705
